FAERS Safety Report 5662406-2 (Version None)
Quarter: 2008Q1

REPORT INFORMATION
  Report Type: 
  Country: None (occurrence: None)
  Receive Date: 20080313
  Receipt Date: 20080303
  Transmission Date: 20080703
  Serious: Yes (Other)
  Sender: FDA-Public Use
  Company Number: IE-JNJFOC-20080301144

PATIENT
  Age: 37 Year
  Sex: Female

DRUGS (1)
  1. DURAGESIC-100 [Suspect]
     Indication: ANALGESIA
     Route: 062

REACTIONS (3)
  - PALPITATIONS [None]
  - URTICARIA [None]
  - WHEEZING [None]
